FAERS Safety Report 16371576 (Version 1)
Quarter: 2019Q2

REPORT INFORMATION
  Report Type: Spontaneous
  Country: US (occurrence: US)
  Receive Date: 20190530
  Receipt Date: 20190530
  Transmission Date: 20190711
  Serious: No
  Sender: FDA-Public Use
  Company Number: US-PFIZER INC-2019229677

PATIENT
  Age: 27 Year
  Sex: Male
  Weight: 106.59 kg

DRUGS (1)
  1. SERTRALINE HCL [Suspect]
     Active Substance: SERTRALINE HYDROCHLORIDE
     Dosage: UNK, DAILY (A PILL AND A HALF A DAY)

REACTIONS (2)
  - Drug ineffective [Unknown]
  - Emotional disorder [Unknown]
